FAERS Safety Report 12711052 (Version 1)
Quarter: 2016Q3

REPORT INFORMATION
  Report Type: Report from Study
  Country: DE (occurrence: DE)
  Receive Date: 20160902
  Receipt Date: 20160902
  Transmission Date: 20161109
  Serious: Yes (Hospitalization)
  Sender: FDA-Public Use
  Company Number: DE-INCYTE CORPORATION-2016IN005406

PATIENT
  Sex: Female
  Weight: 73 kg

DRUGS (2)
  1. INCB018424 [Suspect]
     Active Substance: RUXOLITINIB
     Indication: PRIMARY MYELOFIBROSIS
     Dosage: 15 MG (2 DF), QD
     Route: 048
     Dates: start: 20141208
  2. METOPROLOL. [Concomitant]
     Active Substance: METOPROLOL
     Dosage: 200 OT
     Dates: start: 20051202

REACTIONS (1)
  - Cardiac failure [Not Recovered/Not Resolved]
